FAERS Safety Report 8334992-5 (Version None)
Quarter: 2012Q2

REPORT INFORMATION
  Report Type: 
  Country: None (occurrence: None)
  Receive Date: 20120503
  Receipt Date: 20120425
  Transmission Date: 20120825
  Serious: Yes (Other)
  Sender: FDA-Public Use
  Company Number: US-ELI_LILLY_AND_COMPANY-US201204009691

PATIENT
  Sex: Female

DRUGS (1)
  1. HUMALOG MIX 75/25 [Suspect]
     Indication: DIABETES MELLITUS
     Dosage: 42 U, BID
     Dates: start: 20110701

REACTIONS (3)
  - MULTIPLE SCLEROSIS [None]
  - BLOOD GLUCOSE INCREASED [None]
  - DIABETES MELLITUS [None]
